FAERS Safety Report 25565956 (Version 1)
Quarter: 2025Q3

REPORT INFORMATION
  Report Type: Spontaneous
  Country: US (occurrence: None)
  Receive Date: 20250715
  Receipt Date: 20250715
  Transmission Date: 20251020
  Serious: Yes (Disabling)
  Sender: FDA-CTU
  Company Number: None

PATIENT
  Age: 56 Year
  Sex: Female
  Weight: 72 kg

DRUGS (3)
  1. DSUVIA [Suspect]
     Active Substance: SUFENTANIL
     Indication: Oral surgery
     Dosage: OTHER QUANTITY : 2 TABLET(S);?FREQUENCY : TWICE A DAY;?
     Route: 060
  2. PHENERGAN [Suspect]
     Active Substance: PROMETHAZINE HYDROCHLORIDE
  3. UNSPECIFIED INGREDIENT [Concomitant]
     Active Substance: UNSPECIFIED INGREDIENT

REACTIONS (6)
  - Product communication issue [None]
  - Iatrogenic injury [None]
  - Procedural complication [None]
  - Skeletal injury [None]
  - Unwanted awareness during anaesthesia [None]
  - Product prescribing issue [None]

NARRATIVE: CASE EVENT DATE: 20230628
